FAERS Safety Report 17549764 (Version 2)
Quarter: 2025Q3

REPORT INFORMATION
  Report Type: Spontaneous
  Country: GB (occurrence: GB)
  Receive Date: 20200317
  Receipt Date: 20250703
  Transmission Date: 20251021
  Serious: Yes (Life-Threatening, Hospitalization, Other)
  Sender: AUROBINDO
  Company Number: GB-BELL SONS + COMPANY (DRUGGISTS) LIMITED-2020SCBH004328

PATIENT
  Age: 64 Year
  Sex: Female

DRUGS (1)
  1. ACETAMINOPHEN [Suspect]
     Active Substance: ACETAMINOPHEN
     Indication: Product used for unknown indication
     Route: 065

REACTIONS (4)
  - Renal failure [Unknown]
  - Respiratory failure [Unknown]
  - Sepsis [Unknown]
  - Accidental overdose [Unknown]
